FAERS Safety Report 4801923-1 (Version None)
Quarter: 2005Q4

REPORT INFORMATION
  Report Type: 
  Country: None (occurrence: None)
  Receive Date: 20051018
  Receipt Date: 20050527
  Transmission Date: 20060501
  Serious: Yes (Other)
  Sender: FDA-Public Use
  Company Number: PHEH2005US06034

PATIENT
  Age: 78 Year
  Sex: Female

DRUGS (10)
  1. ZOMETA [Suspect]
     Indication: MULTIPLE MYELOMA
     Dosage: 4 MG EVERY 4 WEEKS
     Dates: start: 20031014, end: 20031111
  2. THALOMID [Suspect]
     Indication: MULTIPLE MYELOMA
     Dosage: 50 MG, QD
     Dates: start: 20031118, end: 20040501
  3. THALOMID [Suspect]
     Dosage: 50MG QOD
     Route: 048
     Dates: start: 20040528, end: 20050210
  4. PROCRIT [Concomitant]
     Indication: ANAEMIA
     Dosage: 40000 UNITS EVERY WEEK
     Dates: start: 20031007, end: 20031014
  5. PROCRIT [Concomitant]
     Dosage: 20000 UNITS UNSPECIFIED
     Dates: start: 20031014
  6. ASPIRIN [Concomitant]
     Indication: CARDIAC DISORDER
     Dosage: 81 MG, QD
  7. CITRACAL [Concomitant]
     Indication: PROPHYLAXIS
     Dosage: 600 MG, QD
     Dates: end: 20031101
  8. ELAVIL [Concomitant]
     Indication: NEUROPATHY
     Dosage: 50 MG, QD
  9. ZOCOR [Concomitant]
     Indication: CARDIAC DISORDER
     Dosage: 40 MG, QD
  10. TOPROL-XL [Concomitant]
     Indication: CARDIAC DISORDER
     Dosage: 100 MG, QD

REACTIONS (8)
  - AMYLOIDOSIS [None]
  - AZOTAEMIA [None]
  - BLOOD CREATININE INCREASED [None]
  - BLOOD UREA INCREASED [None]
  - DIALYSIS [None]
  - PARAESTHESIA [None]
  - RENAL FAILURE [None]
  - RENAL FAILURE CHRONIC [None]
